FAERS Safety Report 4861416-2 (Version None)
Quarter: 2005Q4

REPORT INFORMATION
  Report Type: 
  Country: None (occurrence: None)
  Receive Date: 20051129
  Receipt Date: 20050315
  Transmission Date: 20060501
  Serious: Yes (Disabling)
  Sender: FDA-Public Use
  Company Number: WAES 0503USA02497

PATIENT
  Age: 49 Year
  Sex: Female

DRUGS (2)
  1. FOSAMAX [Suspect]
     Indication: OSTEOPOROSIS
     Dosage: 5 MG/DAILY/PO;   UNK/WKY/PO
     Route: 048
     Dates: end: 20050201
  2. FOSAMAX [Suspect]
     Indication: OSTEOPOROSIS
     Dosage: 5 MG/DAILY/PO;   UNK/WKY/PO
     Route: 048
     Dates: start: 20050201

REACTIONS (3)
  - MALAISE [None]
  - MEDICATION ERROR [None]
  - NAUSEA [None]
